FAERS Safety Report 8338298-X (Version None)
Quarter: 2012Q2

REPORT INFORMATION
  Report Type: 
  Country: None (occurrence: None)
  Receive Date: 20120504
  Receipt Date: 20120424
  Transmission Date: 20120825
  Serious: Yes (Hospitalization, Other)
  Sender: FDA-Public Use
  Company Number: US-ACTELION-A-NJ2012-63284

PATIENT

DRUGS (1)
  1. TRACLEER [Suspect]
     Indication: PULMONARY ARTERIAL HYPERTENSION
     Dosage: 125 MG, BID
     Route: 048
     Dates: start: 20110707

REACTIONS (5)
  - CARDIAC DISORDER [None]
  - ABDOMINAL CAVITY DRAINAGE [None]
  - ASCITES [None]
  - LIVER DISORDER [None]
  - PLEURAL EFFUSION [None]
